FAERS Safety Report 24684168 (Version 1)
Quarter: 2024Q4

REPORT INFORMATION
  Report Type: Spontaneous
  Country: CN (occurrence: CN)
  Receive Date: 20241202
  Receipt Date: 20241202
  Transmission Date: 20250115
  Serious: Yes (Other)
  Sender: Kenvue
  Company Number: CN-KENVUE-20241106983

PATIENT

DRUGS (3)
  1. CHILDRENS MOTRIN [Suspect]
     Active Substance: IBUPROFEN
     Indication: Pharyngitis
     Dosage: 3 MILLILITER, ONCE A DAY
     Route: 048
     Dates: start: 20241107, end: 20241107
  2. CHILDRENS MOTRIN [Suspect]
     Active Substance: IBUPROFEN
     Indication: Antipyresis
  3. HERBALS [Suspect]
     Active Substance: HERBALS
     Indication: Pharyngitis
     Dosage: 5 MILLILITER, FOUR TIME A DAY
     Route: 048
     Dates: start: 20241107, end: 20241107

REACTIONS (2)
  - Incorrect dose administered [Unknown]
  - Drug hypersensitivity [Recovering/Resolving]

NARRATIVE: CASE EVENT DATE: 20241107
